FAERS Safety Report 8773705 (Version 2)
Quarter: 2013Q2

REPORT INFORMATION
  Report Type: Report from Study
  Country: GB (occurrence: GB)
  Receive Date: 20120907
  Receipt Date: 20130415
  Transmission Date: 20140414
  Serious: Yes (Hospitalization)
  Sender: FDA-Public Use
  Company Number: GB-ROCHE-1115838

PATIENT
  Sex: Female
  Weight: 65 kg

DRUGS (3)
  1. TOCILIZUMAB [Suspect]
     Indication: PRODUCT USED FOR UNKNOWN INDICATION
     Route: 065
     Dates: start: 20101022, end: 20120314
  2. TOCILIZUMAB [Suspect]
     Route: 065
     Dates: start: 20120719
  3. METHOTREXATE [Concomitant]

REACTIONS (3)
  - Gastrointestinal infection [Unknown]
  - Inguinal hernia repair [Unknown]
  - Intestinal perforation [Unknown]
